FAERS Safety Report 14938076 (Version 3)
Quarter: 2018Q3

REPORT INFORMATION
  Report Type: Report from Study
  Country: None (occurrence: US)
  Receive Date: 20180525
  Receipt Date: 20180824
  Transmission Date: 20181010
  Serious: Yes (Other)
  Sender: FDA-Public Use
  Company Number: US-ABBVIE-17K-163-1986919-00

PATIENT
  Sex: Male
  Weight: 79.45 kg

DRUGS (2)
  1. HUMIRA [Suspect]
     Active Substance: ADALIMUMAB
     Indication: PSORIATIC ARTHROPATHY
  2. HUMIRA [Suspect]
     Active Substance: ADALIMUMAB
     Indication: PSORIASIS
     Route: 058

REACTIONS (10)
  - Conjunctivitis [Not Recovered/Not Resolved]
  - Pruritus generalised [Unknown]
  - Lacrimation increased [Recovering/Resolving]
  - Eyelid ptosis [Recovering/Resolving]
  - Rash [Recovered/Resolved]
  - Eye infection [Not Recovered/Not Resolved]
  - Eye discharge [Recovering/Resolving]
  - Eyelid margin crusting [Recovering/Resolving]
  - Intraocular pressure increased [Recovering/Resolving]
  - Eyelid retraction [Unknown]

NARRATIVE: CASE EVENT DATE: 2016
